FAERS Safety Report 25572263 (Version 1)
Quarter: 2025Q3

REPORT INFORMATION
  Report Type: Spontaneous
  Country: US (occurrence: US)
  Receive Date: 20250717
  Receipt Date: 20250717
  Transmission Date: 20251020
  Serious: Yes (Life-Threatening, Other)
  Sender: UNITED THERAPEUTICS
  Company Number: US-UNITED THERAPEUTICS-UNT-2025-023316

PATIENT
  Age: 4 Year
  Sex: Male

DRUGS (1)
  1. UNITUXIN [Suspect]
     Active Substance: DINUTUXIMAB
     Indication: Neuroblastoma
     Route: 041

REACTIONS (12)
  - Respiratory failure [Unknown]
  - Respiratory acidosis [Unknown]
  - Congenital central hypoventilation syndrome [Unknown]
  - Brain stem microhaemorrhage [Unknown]
  - Thalamic microhaemorrhage [Unknown]
  - Hypokalaemia [Unknown]
  - Obstructive sleep apnoea syndrome [Unknown]
  - Pyrexia [Unknown]
  - Blood bicarbonate increased [Unknown]
  - Pain [Unknown]
  - Mental status changes [Unknown]
  - Hyponatraemia [Unknown]
